FAERS Safety Report 10429221 (Version 1)
Quarter: 2014Q3

REPORT INFORMATION
  Report Type: Spontaneous
  Country: SA (occurrence: SA)
  Receive Date: 20140904
  Receipt Date: 20140904
  Transmission Date: 20150326
  Serious: Yes (Hospitalization, Other)
  Sender: FDA-Public Use
  Company Number: SA-JNJFOC-20140825738

PATIENT
  Age: 17 Year
  Sex: Male

DRUGS (3)
  1. DEXTROMETHORPHAN [Suspect]
     Active Substance: DEXTROMETHORPHAN
     Indication: PRODUCT USED FOR UNKNOWN INDICATION
     Route: 065
  2. APAP [Suspect]
     Active Substance: ACETAMINOPHEN
     Route: 065
  3. APAP [Suspect]
     Active Substance: ACETAMINOPHEN
     Indication: PRODUCT USED FOR UNKNOWN INDICATION
     Route: 065

REACTIONS (2)
  - Overdose [Unknown]
  - Hepatotoxicity [Recovered/Resolved]
